FAERS Safety Report 4284594-5 (Version None)
Quarter: 2004Q1

REPORT INFORMATION
  Report Type: 
  Country: None (occurrence: None)
  Receive Date: 20040130
  Receipt Date: 20040114
  Transmission Date: 20041129
  Serious: Yes (Other)
  Sender: FDA-Public Use
  Company Number: JP_040102507

PATIENT
  Age: 56 Year
  Sex: Male
  Weight: 54 kg

DRUGS (1)
  1. VANCOMYCIN [Suspect]
     Indication: OSTEOMYELITIS
     Dosage: 1000 MG/DAY
     Dates: start: 20031223, end: 20040112

REACTIONS (2)
  - CREATININE RENAL CLEARANCE DECREASED [None]
  - GRANULOCYTOPENIA [None]
